FAERS Safety Report 12594846 (Version 3)
Quarter: 2016Q3

REPORT INFORMATION
  Report Type: Spontaneous
  Country: PT (occurrence: PT)
  Receive Date: 20160726
  Receipt Date: 20160919
  Transmission Date: 20161109
  Serious: Yes (Other)
  Sender: FDA-Public Use
  Company Number: PT-009507513-1607PRT009231

PATIENT
  Age: 37 Year
  Sex: Female

DRUGS (1)
  1. IMPLANON [Suspect]
     Active Substance: ETONOGESTREL
     Dosage: IMPLANT IN THE LEFT ARM
     Route: 059
     Dates: start: 201504, end: 20160901

REACTIONS (5)
  - Menometrorrhagia [Not Recovered/Not Resolved]
  - Ovarian cyst [Unknown]
  - Pain [Unknown]
  - Migration of implanted drug [Recovered/Resolved]
  - Pain in extremity [Recovered/Resolved]
